FAERS Safety Report 8583517-8 (Version None)
Quarter: 2012Q3

REPORT INFORMATION
  Report Type: 
  Country: None (occurrence: None)
  Receive Date: 20120809
  Receipt Date: 20120731
  Transmission Date: 20120928
  Serious: Yes (Hospitalization)
  Sender: FDA-Public Use
  Company Number: CHNY2012IT000507

PATIENT
  Sex: Female

DRUGS (3)
  1. CLARITHROMYCIN [Suspect]
     Dosage: UNK, UNK
  2. IBUPROFEN [Suspect]
     Dosage: UNK, UNK
  3. ACETAMINOPHEN [Suspect]
     Dosage: UNK, UNK

REACTIONS (3)
  - HYPOTENSION [None]
  - VOMITING [None]
  - ABDOMINAL PAIN UPPER [None]
